FAERS Safety Report 4514740-7 (Version None)
Quarter: 2004Q4

REPORT INFORMATION
  Report Type: 
  Country: None (occurrence: None)
  Receive Date: 20041201
  Receipt Date: 20041119
  Transmission Date: 20050328
  Serious: Yes (Hospitalization)
  Sender: FDA-Public Use
  Company Number: US-JNJFOC-20041105185

PATIENT
  Sex: Female

DRUGS (7)
  1. INFLIXIMAB [Suspect]
     Indication: RHEUMATOID ARTHRITIS
     Route: 042
  2. LASIX [Concomitant]
  3. POTASSIUM [Concomitant]
  4. HYDROXYCHLOROQUINE [Concomitant]
  5. PREDNISONE [Concomitant]
  6. ARAVA [Concomitant]
  7. SOMA [Concomitant]

REACTIONS (2)
  - COLONOSCOPY ABNORMAL [None]
  - REFLUX GASTRITIS [None]
